FAERS Safety Report 6372986-X (Version None)
Quarter: 2009Q3

REPORT INFORMATION
  Report Type: 
  Country: None (occurrence: None)
  Receive Date: 20090924
  Receipt Date: 20081222
  Transmission Date: 20100115
  Serious: No
  Sender: FDA-Public Use
  Company Number: US-ASTRAZENECA-2008UW28506

PATIENT
  Sex: Female

DRUGS (1)
  1. SEROQUEL XR [Suspect]
     Route: 048
     Dates: start: 20081110, end: 20081203

REACTIONS (4)
  - BLOOD PRESSURE [None]
  - DYSKINESIA [None]
  - FLUID RETENTION [None]
  - WEIGHT INCREASED [None]
